FAERS Safety Report 22678155 (Version 9)
Quarter: 2024Q3

REPORT INFORMATION
  Report Type: Report from Study
  Country: US (occurrence: US)
  Receive Date: 20230706
  Receipt Date: 20240717
  Transmission Date: 20241016
  Serious: Yes (Hospitalization)
  Sender: JOHNSON AND JOHNSON
  Company Number: US-009507513-2304USA004885

PATIENT
  Age: 64 Year
  Sex: Male
  Weight: 99.34 kg

DRUGS (98)
  1. RIVAROXABAN [Suspect]
     Active Substance: RIVAROXABAN
     Indication: Thrombosis prophylaxis
     Dosage: 20 MG, QD
     Route: 048
     Dates: start: 20230310, end: 20230407
  2. ASPIRIN [Suspect]
     Active Substance: ASPIRIN
     Indication: Product used for unknown indication
     Dosage: 81 MG, QD
     Route: 048
     Dates: start: 20220601
  3. VERICIGUAT [Suspect]
     Active Substance: VERICIGUAT
     Indication: Product used for unknown indication
     Dosage: UNK
     Route: 048
     Dates: start: 20220210, end: 20220725
  4. ATORVASTATIN [Concomitant]
     Active Substance: ATORVASTATIN
     Dosage: 80 MG, QD
     Route: 048
     Dates: start: 202112
  5. ATORVASTATIN [Concomitant]
     Active Substance: ATORVASTATIN
     Dosage: 80 MG, QD
     Dates: start: 20220913, end: 20230407
  6. PEPCID [Concomitant]
     Active Substance: FAMOTIDINE
     Dosage: 20 MG, BID
     Route: 048
     Dates: start: 202112
  7. TRELEGY ELLIPTA [Concomitant]
     Active Substance: FLUTICASONE FUROATE\UMECLIDINIUM BROMIDE\VILANTEROL TRIFENATATE
     Dosage: 100 DF, QD
     Route: 055
     Dates: start: 202112
  8. UMECLIDINIUM [Concomitant]
     Active Substance: UMECLIDINIUM
     Dosage: 62.5 DF, QD
     Route: 055
     Dates: start: 202112
  9. VILANTEROL [Concomitant]
     Active Substance: VILANTEROL
     Dosage: 25 DF, QD
     Route: 055
     Dates: start: 202112
  10. VENTOLIN HFA [Concomitant]
     Active Substance: ALBUTEROL SULFATE
     Dosage: 2 PUFF(S), PRN
     Route: 055
     Dates: start: 202112
  11. MELATONIN [Concomitant]
     Active Substance: MELATONIN
     Dosage: 5 MG, PRN
     Route: 048
     Dates: start: 202112
  12. MELATONIN [Concomitant]
     Active Substance: MELATONIN
     Dosage: 3 MG, PRN
     Route: 048
  13. TYLENOL PM [Concomitant]
     Active Substance: ACETAMINOPHEN\DIPHENHYDRAMINE
     Dosage: 200 MG, PRN
     Route: 048
     Dates: start: 202112
  14. TOUJEO [Concomitant]
     Active Substance: INSULIN GLARGINE
     Dosage: 60 DF, QD
     Route: 058
     Dates: start: 202202
  15. ACETAMINOPHEN [Concomitant]
     Active Substance: ACETAMINOPHEN
     Dosage: 2600 MG, PRN
     Route: 048
     Dates: start: 20220530
  16. CARBOXYMETHYLCELLULOSE [Concomitant]
     Active Substance: CARBOXYMETHYLCELLULOSE
     Dosage: 1 DROP, PRN
     Route: 047
     Dates: start: 20220531
  17. ERTUGLIFLOZIN [Concomitant]
     Active Substance: ERTUGLIFLOZIN
     Dosage: 15 MG, QD
     Route: 048
     Dates: start: 202206
  18. SITAGLIPTIN [Concomitant]
     Active Substance: SITAGLIPTIN
     Dosage: 100 MG, QD
     Route: 048
     Dates: start: 202206
  19. NITROGLYCERIN [Concomitant]
     Active Substance: NITROGLYCERIN
     Dosage: 0.4 MG, PRN
     Route: 060
     Dates: start: 202206
  20. OXYCODONE [Concomitant]
     Active Substance: OXYCODONE
     Dosage: 5 MG, PRN
     Route: 048
     Dates: start: 202206
  21. OXYCODONE [Concomitant]
     Active Substance: OXYCODONE
     Dosage: 5 MG, PRN
     Route: 048
     Dates: start: 20230310
  22. FUROSEMIDE [Concomitant]
     Active Substance: FUROSEMIDE
     Dosage: 60 MG, BID
     Route: 042
     Dates: start: 20220724
  23. FUROSEMIDE [Concomitant]
     Active Substance: FUROSEMIDE
     Dosage: 40 MG, BID
     Route: 048
     Dates: start: 20221118
  24. ALBUTEROL\IPRATROPIUM [Concomitant]
     Active Substance: ALBUTEROL\IPRATROPIUM
     Dosage: 1 PUFF(S), QID
     Route: 055
     Dates: start: 20220724
  25. LINAGLIPTIN [Concomitant]
     Active Substance: LINAGLIPTIN
     Dosage: 5 MG, QD
     Route: 048
     Dates: start: 20220724
  26. SODIUM ZIRCONIUM CYCLOSILICATE [Concomitant]
     Active Substance: SODIUM ZIRCONIUM CYCLOSILICATE
     Dosage: 10 G, TID
     Route: 048
     Dates: start: 20220724
  27. METRONIDAZOLE [Concomitant]
     Active Substance: METRONIDAZOLE
     Dosage: 500 MG, TID
     Route: 042
     Dates: start: 20220726
  28. ONDANSETRON [Concomitant]
     Active Substance: ONDANSETRON
     Dosage: 16 MG, PRN
     Route: 048
     Dates: start: 20220726
  29. HEPARIN SODIUM, PORCINE [Concomitant]
     Active Substance: HEPARIN SODIUM
     Dosage: 2 ML, BID
     Route: 042
     Dates: start: 20220727
  30. HEPARIN SODIUM, PORCINE [Concomitant]
     Active Substance: HEPARIN SODIUM
     Dosage: 5000 U, TID
     Route: 058
     Dates: start: 20220918
  31. LACTULOSE [Concomitant]
     Active Substance: LACTULOSE
     Dosage: 20 G, BID
     Route: 048
     Dates: start: 20220727
  32. CYCLOBENZAPRINE [Concomitant]
     Active Substance: CYCLOBENZAPRINE
     Dosage: 30 MG, PRN
     Route: 048
     Dates: start: 20220725
  33. DIGOXIN [Concomitant]
     Active Substance: DIGOXIN
     Dosage: 125 UG, CONT
     Route: 042
     Dates: start: 20220730
  34. LOVENOX [Concomitant]
     Active Substance: ENOXAPARIN SODIUM
     Dosage: 0.5 MG/KG, BID
     Route: 058
     Dates: start: 20220731
  35. METOPROLOL TARTRATE [Concomitant]
     Active Substance: METOPROLOL TARTRATE
     Dosage: 12.5 MG, QD
     Route: 048
     Dates: start: 20220731
  36. AMIODARONE [Concomitant]
     Active Substance: AMIODARONE
     Dosage: 400 MG, BID
     Route: 048
     Dates: start: 20220807
  37. AMIODARONE [Concomitant]
     Active Substance: AMIODARONE
     Dosage: 200 MG, QD
     Route: 048
     Dates: start: 20230310, end: 20230407
  38. HEPARIN [Concomitant]
     Active Substance: HEPARIN SODIUM
     Dosage: 5300 U, PRN
     Route: 042
     Dates: start: 20220805
  39. HYDROCORTISONE [Concomitant]
     Active Substance: HYDROCORTISONE\HYDROCORTISONE ACETATE
     Dosage: 1.25 %, BID
     Route: 054
     Dates: start: 20220807
  40. MILRINONE [Concomitant]
     Active Substance: MILRINONE
     Dosage: 2.23 ML, QD
     Route: 042
     Dates: start: 20220807
  41. POTASSIUM CHLORIDE [Concomitant]
     Active Substance: POTASSIUM CHLORIDE
     Dosage: 20 MEQ, QD
     Route: 048
     Dates: start: 20220807
  42. POTASSIUM CHLORIDE [Concomitant]
     Active Substance: POTASSIUM CHLORIDE
     Dosage: 20 MEQ, BID
     Route: 048
     Dates: start: 20230310
  43. SENNOSIDES A AND B [Concomitant]
     Active Substance: SENNOSIDES A AND B
     Dosage: 1 DF, QD
     Route: 048
     Dates: start: 20220807
  44. HYDRALAZINE [Concomitant]
     Active Substance: HYDRALAZINE HYDROCHLORIDE
     Dosage: 10 MG, TID
     Route: 048
     Dates: start: 20220812
  45. TICAGRELOR [Concomitant]
     Active Substance: TICAGRELOR
     Dosage: 90 MG, BID
     Route: 048
     Dates: start: 20220811
  46. SIMETHICONE (DIMETHICONE) [Concomitant]
     Active Substance: DIMETHICONE
     Dosage: 80 MG, PRN
     Route: 048
     Dates: start: 20220810
  47. SIMETHICONE (DIMETHICONE) [Concomitant]
     Active Substance: DIMETHICONE
     Dosage: 80 MG, BID
     Route: 048
     Dates: start: 20230310
  48. OXYGEN [Concomitant]
     Active Substance: OXYGEN
     Dosage: 3 L, CONT
     Route: 055
     Dates: start: 20220601
  49. TAMSULOSIN [Concomitant]
     Active Substance: TAMSULOSIN
     Dosage: 0.4 MG, QD
     Route: 048
     Dates: start: 20220907
  50. TAMSULOSIN [Concomitant]
     Active Substance: TAMSULOSIN
     Dosage: 0.8 MG, QD
     Route: 048
     Dates: start: 20230310, end: 20230409
  51. COLLAGENASE [Concomitant]
     Active Substance: COLLAGENASE CLOSTRIDIUM HISTOLYTICUM
     Dosage: 1 DF, QD
     Route: 061
     Dates: start: 20221018
  52. LIDOCAINE [Concomitant]
     Active Substance: LIDOCAINE
     Dosage: 1 DF, QD
     Route: 003
     Dates: start: 20220608
  53. MAGNESIUM HYDROXIDE [Concomitant]
     Active Substance: MAGNESIUM HYDROXIDE
     Dosage: 10 ML, QD
     Route: 048
     Dates: start: 20221018
  54. MAGNESIUM OXIDE [Concomitant]
     Active Substance: MAGNESIUM OXIDE
     Dosage: 400 MG, QD
     Route: 048
     Dates: start: 20221018
  55. ZINC OXIDE [Concomitant]
     Active Substance: ZINC OXIDE
     Dosage: 1 DF, QD
     Route: 061
     Dates: start: 20221018
  56. HALDOL [Concomitant]
     Active Substance: HALOPERIDOL
     Dosage: 2 MG, PRN
     Route: 042
     Dates: start: 20220915
  57. TRAZODONE [Concomitant]
     Active Substance: TRAZODONE HYDROCHLORIDE
     Dosage: 50 MG, QD
     Route: 048
     Dates: start: 20220918
  58. TRAZODONE [Concomitant]
     Active Substance: TRAZODONE HYDROCHLORIDE
     Dosage: 50 MG, PRN
     Route: 048
     Dates: start: 20230315
  59. BUDESONIDE [Concomitant]
     Active Substance: BUDESONIDE
     Dosage: 0.5 MG, BID
     Route: 055
     Dates: start: 20220927
  60. BUSPIRONE [Concomitant]
     Active Substance: BUSPIRONE HYDROCHLORIDE
     Dosage: 5 MG, TID
     Route: 048
     Dates: start: 20221117
  61. OMEPRAZOLE [Concomitant]
     Active Substance: OMEPRAZOLE
     Dosage: 20 MG, QD
     Route: 048
  62. DAPAGLIFLOZIN [Concomitant]
     Active Substance: DAPAGLIFLOZIN
     Dosage: 5 MG, QD
     Route: 048
     Dates: start: 20220909
  63. DAPAGLIFLOZIN [Concomitant]
     Active Substance: DAPAGLIFLOZIN
     Dosage: 10 MG, BID
     Route: 048
     Dates: start: 20221117
  64. METOPROLOL SUCCINATE [Concomitant]
     Active Substance: METOPROLOL SUCCINATE
     Dosage: 12.5 MG, QD
     Route: 048
  65. METOPROLOL SUCCINATE [Concomitant]
     Active Substance: METOPROLOL SUCCINATE
     Dosage: 50 MG, QD
     Route: 048
     Dates: start: 20220605
  66. METOPROLOL SUCCINATE [Concomitant]
     Active Substance: METOPROLOL SUCCINATE
     Dosage: 12.5 MG, QD
     Route: 048
     Dates: start: 20230310, end: 20230407
  67. PANTOPRAZOLE [Concomitant]
     Active Substance: PANTOPRAZOLE
     Dosage: 40 MG, QD
     Route: 042
     Dates: start: 20220605
  68. PANTOPRAZOLE [Concomitant]
     Active Substance: PANTOPRAZOLE
     Dosage: 40 MG, QD
     Route: 048
     Dates: start: 20220608
  69. PANTOPRAZOLE [Concomitant]
     Active Substance: PANTOPRAZOLE
     Dosage: 40 MG, QD
     Route: 048
     Dates: start: 20220730
  70. GABAPENTIN [Concomitant]
     Active Substance: GABAPENTIN
     Dosage: 600 MG, QD
     Route: 048
     Dates: start: 20220608
  71. POLYETHYLENE GLYCOLS [Concomitant]
     Active Substance: POLYETHYLENE GLYCOLS
     Dosage: 17 G, PRN
     Route: 048
     Dates: start: 20221018
  72. TOUJEO [Concomitant]
     Active Substance: INSULIN GLARGINE
     Dosage: 40 IU, QD
     Route: 058
  73. HUMALOG [Concomitant]
     Active Substance: INSULIN LISPRO
     Dosage: 8 IU, TID
     Route: 058
  74. HUMALOG [Concomitant]
     Active Substance: INSULIN LISPRO
     Dosage: 0.1 ML, TID
     Route: 058
     Dates: start: 202112
  75. PREDNISONE [Concomitant]
     Active Substance: PREDNISONE
     Dosage: 30 MG, QD
     Route: 048
  76. SODIUM CHLORIDE [Concomitant]
     Active Substance: SODIUM CHLORIDE
     Dosage: 5 ML, BID
     Route: 042
     Dates: start: 20220724
  77. FERROUS SULFATE [Concomitant]
     Active Substance: FERROUS SULFATE
     Dosage: 325 MG, QD
     Route: 048
     Dates: start: 20230116
  78. PROTONIX [Concomitant]
     Active Substance: PANTOPRAZOLE SODIUM
     Dosage: 40 MG, BID
     Route: 042
     Dates: start: 20230116
  79. SPIRONOLACTONE [Concomitant]
     Active Substance: SPIRONOLACTONE
     Dosage: 25 MG, QD
     Route: 048
     Dates: start: 20220527
  80. DOCUSATE;SENNA ALEXANDRINA [Concomitant]
     Dosage: 1 DF, BID
     Route: 048
     Dates: start: 20221018
  81. DOCUSATE;SENNA ALEXANDRINA [Concomitant]
     Dosage: 2 DF, PRN
     Route: 048
  82. MICONAZOLE [Concomitant]
     Active Substance: MICONAZOLE
     Dosage: 1 %, BID
     Route: 061
     Dates: start: 20230310
  83. DESLORATADINE [Concomitant]
     Active Substance: DESLORATADINE
     Dosage: 40 %, ONCE
     Route: 061
     Dates: start: 20230315
  84. BUMETANIDE [Concomitant]
     Active Substance: BUMETANIDE
     Dosage: 1 MG, BID
     Route: 048
     Dates: start: 20230310, end: 20230409
  85. ALBUTEROL [Concomitant]
     Active Substance: ALBUTEROL
     Dosage: 2 PUFF(S), PRN
     Route: 055
     Dates: start: 20230315
  86. INSULIN LISPRO [Concomitant]
     Active Substance: INSULIN LISPRO
     Dosage: 3.75 IU, QID
     Route: 058
  87. ASPIRIN [Concomitant]
     Active Substance: ASPIRIN
     Dosage: 81 MG, QD
     Route: 048
     Dates: start: 20220624, end: 20230406
  88. CLOPIDOGREL [Concomitant]
     Active Substance: CLOPIDOGREL BISULFATE
     Dosage: 75 MG, QD
     Route: 048
     Dates: start: 20220527, end: 20230704
  89. ISOSORBIDE MONONITRATE [Concomitant]
     Active Substance: ISOSORBIDE MONONITRATE
     Indication: Cardiac failure congestive
     Dosage: 30 MG, QD
     Route: 048
     Dates: start: 20220527, end: 20230704
  90. LISINOPRIL [Concomitant]
     Active Substance: LISINOPRIL
     Indication: Cardiac failure congestive
     Dosage: 5 MG, QD
     Route: 048
     Dates: start: 20220527, end: 20230704
  91. LISINOPRIL [Concomitant]
     Active Substance: LISINOPRIL
     Indication: Hypertension
  92. OXYBUTYNIN [Concomitant]
     Active Substance: OXYBUTYNIN\OXYBUTYNIN CHLORIDE
     Indication: Benign prostatic hyperplasia
     Dosage: 5 MG, BID
     Route: 048
     Dates: start: 20221014, end: 20230704
  93. SULFAMETHOXAZOLE\TRIMETHOPRIM [Concomitant]
     Active Substance: SULFAMETHOXAZOLE\TRIMETHOPRIM
     Indication: Urinary tract infection
     Dosage: 1 DF, BID
     Route: 048
     Dates: start: 20221025, end: 20230704
  94. CEPHALEXIN [Concomitant]
     Active Substance: CEPHALEXIN
     Indication: Pneumonia
     Dosage: 500 MG, TID
     Route: 048
     Dates: start: 20220830, end: 20230704
  95. ZOLPIDEM [Concomitant]
     Active Substance: ZOLPIDEM TARTRATE
     Indication: Sedation
     Dosage: 5 MG, QD
     Route: 048
     Dates: start: 20220830, end: 20230704
  96. ALBUTEROL SULFATE [Concomitant]
     Active Substance: ALBUTEROL SULFATE
     Indication: Asthma-chronic obstructive pulmonary disease overlap syndrome
     Dosage: 2.5 MG, QID
     Route: 055
     Dates: start: 20221116, end: 20230704
  97. MEROPENEM [Concomitant]
     Active Substance: MEROPENEM
     Indication: Respiratory syncytial virus infection
     Dosage: UNK
     Route: 042
     Dates: start: 20220527, end: 20230704
  98. ZINC OXIDE [Concomitant]
     Active Substance: ZINC OXIDE
     Dosage: 1 G DAILY, PRN
     Route: 061
     Dates: start: 20230310, end: 20230409

REACTIONS (4)
  - Gastrointestinal haemorrhage [Recovered/Resolved]
  - Sepsis [Recovered/Resolved]
  - Constipation [Not Recovered/Not Resolved]
  - Hypotension [Not Recovered/Not Resolved]

NARRATIVE: CASE EVENT DATE: 20230406
